FAERS Safety Report 9684640 (Version 2)
Quarter: 2013Q4

REPORT INFORMATION
  Report Type: Spontaneous
  Country: US (occurrence: None)
  Receive Date: 20131108
  Receipt Date: 20131118
  Transmission Date: 20140711
  Serious: Yes (Hospitalization)
  Sender: FDA-Public Use
  Company Number: 2013P1020427

PATIENT
  Sex: Female

DRUGS (1)
  1. PROSHIELD PLUS SKIN PROTECTANT [Suspect]
     Route: 047
     Dates: start: 20131022, end: 20131022

REACTIONS (5)
  - Vision blurred [None]
  - Eye irritation [None]
  - Eye pain [None]
  - Exposure via direct contact [None]
  - Accidental exposure to product [None]
